FAERS Safety Report 6626443-3 (Version None)
Quarter: 2010Q1

REPORT INFORMATION
  Report Type: 
  Country: None (occurrence: None)
  Receive Date: 20100310
  Receipt Date: 20091117
  Transmission Date: 20100710
  Serious: No
  Sender: FDA-Public Use
  Company Number: US-ABBOTT-09P-163-0610039-00

PATIENT
  Sex: Female
  Weight: 59.928 kg

DRUGS (1)
  1. LUPRON DEPOT [Suspect]
     Indication: ENDOMETRIOSIS
     Route: 050
     Dates: start: 20080101

REACTIONS (2)
  - INJECTION SITE ERYTHEMA [None]
  - INJECTION SITE SWELLING [None]
